FAERS Safety Report 4982833-6 (Version None)
Quarter: 2006Q2

REPORT INFORMATION
  Report Type: 
  Country: None (occurrence: None)
  Receive Date: 20060425
  Receipt Date: 20051103
  Transmission Date: 20061013
  Serious: Yes (Hospitalization, Disabling, Other)
  Sender: FDA-Public Use
  Company Number: US-MERCK-0511USA00594

PATIENT
  Age: 45 Year
  Sex: Male
  Weight: 118 kg

DRUGS (2)
  1. VIOXX [Suspect]
     Indication: MUSCULOSKELETAL DISCOMFORT
     Route: 048
     Dates: start: 20030611
  2. TYLENOL (CAPLET) [Concomitant]
     Route: 065

REACTIONS (16)
  - AMNESIA [None]
  - ATRIAL FIBRILLATION [None]
  - CONVULSION [None]
  - DEPRESSION [None]
  - DIZZINESS [None]
  - ELECTRIC SHOCK [None]
  - EMOTIONAL DISORDER [None]
  - ENCEPHALOPATHY [None]
  - HYPERCHOLESTEROLAEMIA [None]
  - HYPOAESTHESIA [None]
  - INSOMNIA [None]
  - MENTAL IMPAIRMENT [None]
  - MIGRAINE [None]
  - NECK PAIN [None]
  - PULMONARY HYPERTENSION [None]
  - TRANSIENT ISCHAEMIC ATTACK [None]
